FAERS Safety Report 5905961-7 (Version None)
Quarter: 2008Q4

REPORT INFORMATION
  Report Type: 
  Country: None (occurrence: None)
  Receive Date: 20081002
  Receipt Date: 20080919
  Transmission Date: 20090506
  Serious: No
  Sender: FDA-Public Use
  Company Number: JP-MERCK-0805USA05234

PATIENT
  Age: 65 Year
  Sex: Male
  Weight: 58 kg

DRUGS (3)
  1. PRIMAXIN [Suspect]
     Indication: PNEUMONIA
     Route: 042
     Dates: start: 20080501, end: 20080512
  2. HABEKACIN [Suspect]
     Indication: PNEUMONIA
     Route: 042
     Dates: start: 20080501, end: 20080510
  3. OMEPRAZOLE [Suspect]
     Route: 048

REACTIONS (1)
  - HYPOGEUSIA [None]
